FAERS Safety Report 24245355 (Version 4)
Quarter: 2024Q3

REPORT INFORMATION
  Report Type: Spontaneous
  Country: FR (occurrence: FR)
  Receive Date: 20240824
  Receipt Date: 20240917
  Transmission Date: 20241017
  Serious: Yes (Hospitalization, Other)
  Sender: ROCHE
  Company Number: None

PATIENT
  Age: 67 Year
  Sex: Male
  Weight: 82 kg

DRUGS (31)
  1. RITUXIMAB [Suspect]
     Active Substance: RITUXIMAB
     Indication: Richter^s syndrome
     Dosage: 375 MG/M2, C1D1, AS A PART OF R-CHOP REGIMEN, 3-WEEK CYCLE (21 DAYS) (DAY 1)
     Route: 050
     Dates: start: 20240725, end: 20240725
  2. EPCORITAMAB [Suspect]
     Active Substance: EPCORITAMAB
     Indication: Richter^s syndrome
     Dosage: 0.16 MG, PRIMING DOSE, WEEKLY (QW), C1D1, 3-WEEK CYCLE (21 DAYS) (DUOBODY-CD3XCD20)
     Route: 050
     Dates: start: 20240726, end: 20240726
  3. EPCORITAMAB [Suspect]
     Active Substance: EPCORITAMAB
     Dosage: 0.16 MG (REPRIMING DOSE), CYCLE 1 DAY 1 (RPD1)
     Route: 050
     Dates: start: 20240809, end: 20240809
  4. EPCORITAMAB [Suspect]
     Active Substance: EPCORITAMAB
     Dosage: REPRIMING DOSE 0.8 MG, CYCLE 1 DAY 8 (RPD8)
     Route: 050
     Dates: start: 20240816, end: 20240816
  5. DOXORUBICIN HYDROCHLORIDE [Suspect]
     Active Substance: DOXORUBICIN HYDROCHLORIDE
     Indication: Richter^s syndrome
     Dosage: 50 MG/M2, 3-WEEK CYCLE (21 DAYS) (DAY 1)
     Route: 042
     Dates: start: 20240725, end: 20240725
  6. PREDNISONE [Suspect]
     Active Substance: PREDNISONE
     Indication: Richter^s syndrome
     Dosage: 100 MG/DAY, C1D1-D5, AS A PART OF R-CHOP REGIMEN, 3-WEEK CYCLE (21 DAYS) (DAY 1), INTRAVENOUS OR ORA
     Route: 065
     Dates: start: 20240725, end: 20240729
  7. VINCRISTINE [Suspect]
     Active Substance: VINCRISTINE
     Indication: Richter^s syndrome
     Dosage: 1.4 MG/M2 (RECOMMENDED CAP OF 2 MG), C1D1, AS A PART OF R-CHOP REGIMEN, 3-WEEK CYCLE (21 DAYS) (DAY
     Route: 050
     Dates: start: 20240725, end: 20240725
  8. CYCLOPHOSPHAMIDE [Suspect]
     Active Substance: CYCLOPHOSPHAMIDE
     Indication: Richter^s syndrome
     Dosage: 750 MG/M2, C1D1, AS A PART OF R-CHOP REGIMEN, 3-WEEK CYCLE (21 DAYS) (DAY 1)
     Route: 050
     Dates: start: 20240725, end: 20240725
  9. MORPHINE [Concomitant]
     Active Substance: MORPHINE
     Dosage: UNK
     Route: 065
     Dates: start: 20240806, end: 20240811
  10. LIPTRUZET [Concomitant]
     Active Substance: ATORVASTATIN CALCIUM\EZETIMIBE
     Dosage: UNK, ONGOING
     Route: 065
  11. LERCANIDIPINE [Concomitant]
     Active Substance: LERCANIDIPINE
     Dosage: UNK, ONGOING
     Route: 065
  12. BI PRETERAX [INDAPAMIDE;PERINDOPRIL ARGININE] [Concomitant]
     Dosage: UNK, ONGOING
     Route: 065
  13. OMEPRAZOLE [Concomitant]
     Active Substance: OMEPRAZOLE
     Dosage: UNK, ONGOING
     Route: 065
  14. EFFERALGAN [Concomitant]
     Active Substance: ACETAMINOPHEN
     Indication: Premedication
     Dosage: 1 G
     Route: 050
     Dates: start: 20240726, end: 20240726
  15. EFFERALGAN [Concomitant]
     Active Substance: ACETAMINOPHEN
     Dosage: 1 G
     Route: 050
     Dates: start: 20240816, end: 20240816
  16. EFFERALGAN [Concomitant]
     Active Substance: ACETAMINOPHEN
     Dosage: 1 G
     Route: 050
     Dates: start: 20240809, end: 20240809
  17. PREDNISONE [Concomitant]
     Active Substance: PREDNISONE
     Dosage: UNK, ONGOING
     Route: 065
     Dates: start: 20240705
  18. NEBIVOLOL [Concomitant]
     Active Substance: NEBIVOLOL
     Dosage: UNK, ONGOING
     Route: 065
  19. NEBIVOLOL [Concomitant]
     Active Substance: NEBIVOLOL
     Dosage: UNK
  20. DAPTOMYCIN [Concomitant]
     Active Substance: DAPTOMYCIN
     Dosage: UNK
     Route: 065
     Dates: start: 20240802, end: 20240809
  21. ALLOPURINOL [Concomitant]
     Active Substance: ALLOPURINOL
     Dosage: UNK, ONGOING
     Route: 065
  22. KARDEGIC [Concomitant]
     Active Substance: ASPIRIN DL-LYSINE
     Dosage: UNK, START DATE: 2008 TO ONGOING
     Route: 065
     Dates: start: 2008
  23. PANTOPRAZOLE [Concomitant]
     Active Substance: PANTOPRAZOLE
     Dosage: UNK, ONGOING
     Route: 065
     Dates: start: 20240808
  24. DEXCHLORPHENIRAMINE MALEATE [Concomitant]
     Active Substance: DEXCHLORPHENIRAMINE MALEATE
     Indication: Premedication
     Dosage: 5 MG
     Route: 050
     Dates: start: 20240816, end: 20240816
  25. DEXCHLORPHENIRAMINE MALEATE [Concomitant]
     Active Substance: DEXCHLORPHENIRAMINE MALEATE
     Dosage: 5 MG
     Route: 050
     Dates: start: 20240809, end: 20240809
  26. DEXCHLORPHENIRAMINE MALEATE [Concomitant]
     Active Substance: DEXCHLORPHENIRAMINE MALEATE
     Dosage: 5 MG
     Route: 050
     Dates: start: 20240726, end: 20240726
  27. VALACYCLOVIR HYDROCHLORIDE [Concomitant]
     Active Substance: VALACYCLOVIR HYDROCHLORIDE
     Dosage: UNK, ONGOING
     Route: 065
  28. CEFTRIAXONE [Concomitant]
     Active Substance: CEFTRIAXONE\CEFTRIAXONE SODIUM
     Dosage: UNK
     Route: 065
     Dates: start: 20240804, end: 20240814
  29. PIPERACILLIN SODIUM\TAZOBACTAM SODIUM [Concomitant]
     Active Substance: PIPERACILLIN SODIUM\TAZOBACTAM SODIUM
     Dosage: UNK
     Route: 065
     Dates: start: 20240801, end: 20240803
  30. SKENAN [Concomitant]
     Active Substance: MORPHINE SULFATE
     Dosage: UNK, ONGOING
     Route: 065
     Dates: start: 20240811
  31. BACTRIM [Concomitant]
     Active Substance: SULFAMETHOXAZOLE\TRIMETHOPRIM
     Dosage: UNK, ONGOING
     Route: 065

REACTIONS (7)
  - Staphylococcal bacteraemia [Unknown]
  - Febrile bone marrow aplasia [Recovered/Resolved]
  - Oesophagitis [Unknown]
  - Gastric ulcer [Unknown]
  - Thrombocytopenia [Unknown]
  - Escherichia sepsis [Unknown]
  - Neutropenia [Unknown]

NARRATIVE: CASE EVENT DATE: 20240801
